FAERS Safety Report 10710957 (Version 7)
Quarter: 2015Q3

REPORT INFORMATION
  Report Type: Report from Study
  Country: DE (occurrence: DE)
  Receive Date: 20150114
  Receipt Date: 20150805
  Transmission Date: 20151125
  Serious: Yes (Other)
  Sender: FDA-Public Use
  Company Number: PHHY2014DE169684

PATIENT
  Age: 3 Year
  Sex: Female
  Weight: 14.8 kg

DRUGS (9)
  1. VOTUBIA [Suspect]
     Active Substance: EVEROLIMUS
     Indication: ASTROCYTOMA, LOW GRADE
     Dosage: 2 MG, QD
     Route: 065
     Dates: start: 20140418, end: 20140505
  2. LEVETIRACETAM UCB [Concomitant]
     Active Substance: LEVETIRACETAM
     Indication: EPILEPSY
     Dosage: 375 OT IN THE MORNING AND 500 OT IN THE EVENING
     Route: 048
     Dates: start: 20140509
  3. TIMONIL - SLOW RELEASE [Concomitant]
     Indication: EPILEPSY
     Dosage: 375-0-525 OT, UNK
     Route: 048
     Dates: start: 201301, end: 20141101
  4. VOTUBIA [Suspect]
     Active Substance: EVEROLIMUS
     Dosage: 3 MG, QD
     Route: 065
     Dates: start: 20140506, end: 20140609
  5. LEVETIRACETAM UCB [Concomitant]
     Active Substance: LEVETIRACETAM
     Dosage: 500 OT, BID
     Route: 048
  6. SABRIL [Concomitant]
     Active Substance: VIGABATRIN
     Indication: EPILEPSY
     Dosage: 750 OT, BID (750-0-750)
     Route: 048
     Dates: start: 201105, end: 20140508
  7. LAMICTAL [Concomitant]
     Active Substance: LAMOTRIGINE
     Indication: EPILEPSY
     Dosage: 17.5 OT IN THE MORNING AND 25 OT IN THE EVENING
     Route: 048
     Dates: start: 20140612
  8. VOTUBIA [Suspect]
     Active Substance: EVEROLIMUS
     Dosage: 3 MG, QD
     Route: 065
     Dates: start: 20141003, end: 20141101
  9. CARBAMAZEPIN [Concomitant]
     Active Substance: CARBAMAZEPINE
     Indication: EPILEPSY
     Dosage: 375-525 MG, UNK
     Route: 065
     Dates: start: 20130909

REACTIONS (3)
  - Seizure [Recovered/Resolved]
  - Seizure [Recovering/Resolving]
  - Status epilepticus [Unknown]

NARRATIVE: CASE EVENT DATE: 20140501
